FAERS Safety Report 4717428-2 (Version None)
Quarter: 2005Q3

REPORT INFORMATION
  Report Type: 
  Country: None (occurrence: None)
  Receive Date: 20050715
  Receipt Date: 20050711
  Transmission Date: 20060218
  Serious: Yes (Hospitalization)
  Sender: FDA-Public Use
  Company Number: S05-USA-03056-01

PATIENT
  Age: 43 Year
  Sex: Female
  Weight: 56.3821 kg

DRUGS (4)
  1. CAMPRAL [Suspect]
     Indication: DRUG DEPENDENCE
     Dosage: 666 MG TID PO
     Route: 048
     Dates: start: 20050517
  2. ALCOHOL [Suspect]
  3. EFFEXOR [Concomitant]
  4. TRAZODONE HCL [Concomitant]

REACTIONS (8)
  - ALCOHOLIC [None]
  - BLOOD CHLORIDE DECREASED [None]
  - BLOOD GLUCOSE INCREASED [None]
  - BLOOD POTASSIUM DECREASED [None]
  - BLOOD UREA DECREASED [None]
  - CALCIUM IONISED DECREASED [None]
  - DRUG INEFFECTIVE [None]
  - KETOACIDOSIS [None]
